FAERS Safety Report 21632534 (Version 1)
Quarter: 2022Q4

REPORT INFORMATION
  Report Type: Spontaneous
  Country: GB (occurrence: GB)
  Receive Date: 20221123
  Receipt Date: 20221123
  Transmission Date: 20230112
  Serious: Yes (Hospitalization, Other)
  Sender: FDA-Public Use
  Company Number: None

PATIENT
  Age: 53 Year
  Sex: Male

DRUGS (4)
  1. QUETIAPINE [Suspect]
     Active Substance: QUETIAPINE
     Indication: Anxiety
     Dosage: 150 MG/D; ;
     Route: 065
     Dates: start: 20190701
  2. VALPROATE SODIUM [Suspect]
     Active Substance: VALPROATE SODIUM
     Indication: Adverse drug reaction
     Dosage: 500 MG TWICE A DAY; ;
     Route: 065
     Dates: start: 20220201, end: 20220815
  3. PREGABALIN [Suspect]
     Active Substance: PREGABALIN
     Indication: Neuralgia
     Dosage: 200 MG TWICE A DAY
     Route: 065
     Dates: start: 20190501
  4. ACETAMINOPHEN [Concomitant]
     Active Substance: ACETAMINOPHEN
     Indication: Headache
     Route: 065
     Dates: start: 20090101

REACTIONS (7)
  - Eye pain [Not Recovered/Not Resolved]
  - Nasopharyngitis [Unknown]
  - Chills [Unknown]
  - Tonic clonic movements [Unknown]
  - Bradycardia [Unknown]
  - Headache [Unknown]
  - Apathy [Unknown]

NARRATIVE: CASE EVENT DATE: 20190501
